FAERS Safety Report 8440150-6 (Version None)
Quarter: 2012Q2

REPORT INFORMATION
  Report Type: 
  Country: None (occurrence: None)
  Receive Date: 20120615
  Receipt Date: 20120606
  Transmission Date: 20120825
  Serious: Yes (Other)
  Sender: FDA-Public Use
  Company Number: US-ROCHE-1047347

PATIENT
  Sex: Male
  Weight: 104.42 kg

DRUGS (1)
  1. ACCUTANE [Suspect]
     Indication: FOLLICULITIS
     Dates: start: 19841210, end: 19850510

REACTIONS (2)
  - INTESTINAL HAEMORRHAGE [None]
  - COLITIS ULCERATIVE [None]
